FAERS Safety Report 7335075-3 (Version None)
Quarter: 2011Q1

REPORT INFORMATION
  Report Type: 
  Country: None (occurrence: None)
  Receive Date: 20110307
  Receipt Date: 20110222
  Transmission Date: 20110831
  Serious: Yes (Death)
  Sender: FDA-Public Use
  Company Number: US-ELI_LILLY_AND_COMPANY-US201102006546

PATIENT
  Age: 62 Year
  Sex: Male

DRUGS (6)
  1. OLANZAPINE [Suspect]
  2. LABETALOL HCL [Concomitant]
  3. TRAMADOL HCL [Concomitant]
  4. TRAZADOL [Concomitant]
  5. AMLODIPINE [Concomitant]
  6. QUETIAPINE [Concomitant]

REACTIONS (1)
  - COMPLETED SUICIDE [None]
